FAERS Safety Report 19790378 (Version 1)
Quarter: 2021Q3

REPORT INFORMATION
  Report Type: Spontaneous
  Country: US (occurrence: US)
  Receive Date: 20210906
  Receipt Date: 20210906
  Transmission Date: 20211014
  Serious: No
  Sender: FDA-Public Use
  Company Number: US-JNJFOC-20210844222

PATIENT
  Age: 54 Year
  Sex: Female
  Weight: 65.77 kg

DRUGS (2)
  1. COVID?19 VACCINE [Concomitant]
     Indication: PRODUCT USED FOR UNKNOWN INDICATION
     Dosage: 0.3ML, INTRAMUSCULAR INJECTION IN LEFT ARM
     Route: 030
     Dates: start: 20210808
  2. PARACETAMOL [Suspect]
     Active Substance: ACETAMINOPHEN
     Indication: SWELLING FACE
     Route: 065
     Dates: start: 20210810

REACTIONS (2)
  - Therapeutic response unexpected [Unknown]
  - Product use in unapproved indication [Unknown]

NARRATIVE: CASE EVENT DATE: 20210810
